FAERS Safety Report 23711263 (Version 1)
Quarter: 2024Q2

REPORT INFORMATION
  Report Type: Spontaneous
  Country: GB (occurrence: GB)
  Receive Date: 20240405
  Receipt Date: 20240405
  Transmission Date: 20240716
  Serious: No
  Sender: FDA-Public Use
  Company Number: GB-Marksans Pharma Limited-2155256

PATIENT
  Age: 15 Year
  Sex: Male

DRUGS (2)
  1. IBUPROFEN [Suspect]
     Active Substance: IBUPROFEN
     Indication: Overdose
     Route: 048
  2. CALPOL [Suspect]
     Active Substance: ACETAMINOPHEN

REACTIONS (1)
  - Overdose [Unknown]
